FAERS Safety Report 14817249 (Version 4)
Quarter: 2018Q2

REPORT INFORMATION
  Report Type: Report from Study
  Country: DE (occurrence: DE)
  Receive Date: 20180426
  Receipt Date: 20180530
  Transmission Date: 20180711
  Serious: Yes (Hospitalization, Other)
  Sender: FDA-Public Use
  Company Number: PHHY2018DE055948

PATIENT
  Sex: Female
  Weight: 69 kg

DRUGS (10)
  1. LOSARTAN PLUS [Concomitant]
     Indication: HYPERTENSION
     Dosage: 100 MG/12.5 MG, QD
     Route: 048
     Dates: start: 20081017, end: 20171211
  2. METOPROLOL. [Concomitant]
     Active Substance: METOPROLOL
     Indication: HYPERTENSION
     Dosage: 0.5 DF, BID (0.5-0-0.5)
     Route: 048
     Dates: start: 20081017
  3. JAKAVI [Suspect]
     Active Substance: RUXOLITINIB
     Indication: MYELOFIBROSIS
     Dosage: 15 MG, BID
     Route: 048
     Dates: start: 20170111, end: 20180412
  4. EXJADE [Suspect]
     Active Substance: DEFERASIROX
     Indication: IRON OVERLOAD
     Dosage: 900 OT, UNK
     Route: 065
     Dates: start: 20171016, end: 20171204
  5. AMLODIPINE [Concomitant]
     Active Substance: AMLODIPINE BESYLATE
     Indication: HYPERTENSION
     Dosage: 5 OT, UNK
     Dates: start: 20081017
  6. ASPIRIN. [Concomitant]
     Active Substance: ASPIRIN
     Indication: CORONARY ARTERY DISEASE
     Dosage: 100 OT, UNK
     Route: 065
     Dates: start: 20170111
  7. LOSARTAN. [Concomitant]
     Active Substance: LOSARTAN
     Indication: HYPERTENSION
     Dosage: 50 OT, UNK
     Route: 065
     Dates: start: 20170123, end: 20171205
  8. LOSARTAN. [Concomitant]
     Active Substance: LOSARTAN
     Dosage: 25 MG, UNK
     Route: 065
  9. TORASEMIDE [Concomitant]
     Active Substance: TORSEMIDE
     Indication: HYPERTENSION
     Dosage: 5 MG, UNK
     Route: 065
     Dates: start: 20171205
  10. SIMVASTATIN. [Concomitant]
     Active Substance: SIMVASTATIN
     Indication: HYPERTENSION
     Dosage: 20 OT, UNK
     Route: 065
     Dates: start: 20170123

REACTIONS (7)
  - Metastases to ovary [Unknown]
  - Ascites [Not Recovered/Not Resolved]
  - Metastases to liver [Unknown]
  - Neoplasm malignant [Not Recovered/Not Resolved]
  - Malignant pleural effusion [Unknown]
  - Metastases to lymph nodes [Unknown]
  - Metastases to pancreas [Unknown]

NARRATIVE: CASE EVENT DATE: 20180326
